FAERS Safety Report 8563378-3 (Version None)
Quarter: 2012Q3

REPORT INFORMATION
  Report Type: 
  Country: None (occurrence: None)
  Receive Date: 20120802
  Receipt Date: 20111114
  Transmission Date: 20120928
  Serious: Yes (Hospitalization)
  Sender: FDA-Public Use
  Company Number: US-ABBOTT-11P-163-0874162-01

PATIENT
  Sex: Male
  Weight: 81.72 kg

DRUGS (2)
  1. HUMIRA [Suspect]
     Indication: PSORIASIS
     Route: 058
     Dates: start: 20110216
  2. HUMIRA [Suspect]
     Route: 058
     Dates: start: 20110614

REACTIONS (2)
  - CLOSTRIDIAL INFECTION [None]
  - ANGINA PECTORIS [None]
